FAERS Safety Report 5335212-6 (Version None)
Quarter: 2007Q2

REPORT INFORMATION
  Report Type: 
  Country: None (occurrence: None)
  Receive Date: 20070525
  Receipt Date: 20070515
  Transmission Date: 20071010
  Serious: Yes (Other)
  Sender: FDA-Public Use
  Company Number: US-PFIZER INC-2007013801

PATIENT
  Sex: Male

DRUGS (2)
  1. XALATAN [Suspect]
  2. XAL-EASE [Suspect]

REACTIONS (2)
  - CATARACT OPERATION [None]
  - DEVICE INEFFECTIVE [None]
